FAERS Safety Report 20695115 (Version 4)
Quarter: 2022Q2

REPORT INFORMATION
  Report Type: Report from Study
  Country: CA (occurrence: CA)
  Receive Date: 20220411
  Receipt Date: 20220620
  Transmission Date: 20220721
  Serious: Yes (Hospitalization, Other)
  Sender: FDA-Public Use
  Company Number: CA-HLS-202200755

PATIENT
  Age: 38 Year
  Sex: Male

DRUGS (2)
  1. CLOZARIL [Suspect]
     Active Substance: CLOZAPINE
     Indication: Product used for unknown indication
     Dosage: AT BEDTIME
     Route: 048
     Dates: start: 20170831
  2. JANUMET [Concomitant]
     Active Substance: METFORMIN HYDROCHLORIDE\SITAGLIPTIN PHOSPHATE
     Indication: Product used for unknown indication
     Dosage: 50 MG/ 1000MG ,  1TABLET TWICE DAILY
     Route: 048

REACTIONS (5)
  - Tachycardia [Unknown]
  - Tachycardia [Not Recovered/Not Resolved]
  - Blood pressure increased [Unknown]
  - Lymphocyte count increased [Unknown]
  - Mean platelet volume increased [Unknown]

NARRATIVE: CASE EVENT DATE: 20211007
